FAERS Safety Report 15020828 (Version 1)
Quarter: 2018Q2

REPORT INFORMATION
  Report Type: Spontaneous
  Country: US (occurrence: US)
  Receive Date: 20180618
  Receipt Date: 20180618
  Transmission Date: 20180711
  Serious: No
  Sender: FDA-Public Use
  Company Number: US-PFIZER INC-2018241519

PATIENT
  Age: 59 Year
  Sex: Female

DRUGS (2)
  1. XELJANZ XR [Suspect]
     Active Substance: TOFACITINIB CITRATE
     Dosage: 11 MG, DAILY
     Route: 048
  2. XELJANZ XR [Suspect]
     Active Substance: TOFACITINIB CITRATE
     Dosage: 11 MG, ALTERNATE DAY (EVERY OTHER DAY)
     Route: 048

REACTIONS (8)
  - Arthralgia [Unknown]
  - Joint swelling [Unknown]
  - Aspartate aminotransferase increased [Unknown]
  - Musculoskeletal pain [Unknown]
  - Blood cholesterol increased [Unknown]
  - Pain in extremity [Unknown]
  - Peripheral swelling [Unknown]
  - Product use issue [Unknown]
